FAERS Safety Report 7639687-9 (Version None)
Quarter: 2011Q3

REPORT INFORMATION
  Report Type: 
  Country: None (occurrence: None)
  Receive Date: 20110727
  Receipt Date: 20110721
  Transmission Date: 20111222
  Serious: Yes (Other)
  Sender: FDA-Public Use
  Company Number: US-SANOFI-AVENTIS-2011SA038805

PATIENT
  Age: 69 Year
  Sex: Male

DRUGS (5)
  1. LOVASTATIN [Concomitant]
     Dates: start: 20090101
  2. LANTUS [Suspect]
     Dosage: ABOUT 90 UNITS DAILY
     Route: 058
     Dates: start: 20040101
  3. LANTUS [Suspect]
     Dosage: ABOUT 90 UNITS DAILY DOSE:52 UNIT(S)
     Route: 058
     Dates: start: 20100101
  4. NOVOLOG [Concomitant]
  5. COREG [Concomitant]
     Dates: start: 20090101

REACTIONS (2)
  - RENAL CANCER [None]
  - HEPATIC NEOPLASM MALIGNANT [None]
